FAERS Safety Report 5415212-8 (Version None)
Quarter: 2007Q3

REPORT INFORMATION
  Report Type: 
  Country: None (occurrence: None)
  Receive Date: 20070815
  Receipt Date: 20070804
  Transmission Date: 20080115
  Serious: Yes (Hospitalization)
  Sender: FDA-Public Use
  Company Number: DE-AMGEN-UK233480

PATIENT
  Sex: Male

DRUGS (16)
  1. CINACALCET - BLINDED [Suspect]
     Indication: HYPERPARATHYROIDISM SECONDARY
     Route: 048
     Dates: start: 20070213
  2. ASPIRIN [Concomitant]
     Route: 048
     Dates: start: 20050121
  3. HEPARIN [Concomitant]
     Route: 058
  4. PHENPROCOUMON [Concomitant]
     Route: 065
     Dates: start: 20060912
  5. LACTULOSE [Concomitant]
     Route: 048
     Dates: start: 20050121
  6. GABAPENTIN [Concomitant]
     Route: 048
     Dates: start: 20060912
  7. SODIUM BICARBONATE [Concomitant]
     Route: 048
     Dates: start: 20060912
  8. CALCITRIOL [Concomitant]
     Route: 048
     Dates: start: 20060912
  9. DEKRISTOL [Concomitant]
     Route: 048
     Dates: start: 20060912
  10. CALCIUM CHLORIDE [Concomitant]
     Dates: start: 20070705
  11. VITARENAL [Concomitant]
     Route: 048
     Dates: start: 20060912
  12. PROTAPHANE MC [Concomitant]
     Dates: start: 20060912
  13. ACTRAPID INSULIN NOVO [Concomitant]
     Dates: start: 20060912
  14. PHOSPHONORM [Concomitant]
     Dates: start: 20070120
  15. METOPROLOL SUCCINATE [Concomitant]
     Dates: start: 20070628
  16. RAMIPRIL [Concomitant]
     Dates: start: 20070628

REACTIONS (4)
  - DUODENAL ULCER [None]
  - GASTRIC ULCER [None]
  - GASTRITIS [None]
  - OESOPHAGITIS [None]
